FAERS Safety Report 6075858-3 (Version None)
Quarter: 2009Q1

REPORT INFORMATION
  Report Type: 
  Country: None (occurrence: None)
  Receive Date: 20090212
  Receipt Date: 20090203
  Transmission Date: 20090719
  Serious: Yes (Other)
  Sender: FDA-Public Use
  Company Number: ES-JNJFOC-20090201693

PATIENT
  Sex: Female

DRUGS (12)
  1. REMICADE [Suspect]
     Route: 042
  2. REMICADE [Suspect]
     Indication: RHEUMATOID ARTHRITIS
     Route: 042
  3. CORTICOID [Concomitant]
  4. METHOTREXATE [Concomitant]
  5. LEFLUNOMIDE [Concomitant]
  6. AINES [Concomitant]
  7. OMEPRAZOLE [Concomitant]
  8. CALCIUM WITH VITAMIN D [Concomitant]
  9. BENZODIAZEPINE [Concomitant]
  10. LEFLUNOMIDE [Concomitant]
  11. DIPYRONE TAB [Concomitant]
  12. PREDNISONE [Concomitant]

REACTIONS (2)
  - LOCALISED INFECTION [None]
  - MYCOSIS FUNGOIDES [None]
